FAERS Safety Report 25791513 (Version 1)
Quarter: 2025Q3

REPORT INFORMATION
  Report Type: Report from Study
  Country: GB (occurrence: GB)
  Receive Date: 20250911
  Receipt Date: 20250911
  Transmission Date: 20251021
  Serious: Yes (Hospitalization)
  Sender: ASTELLAS
  Company Number: GB-ASTELLAS-2025-AER-049845

PATIENT
  Age: 74 Year
  Sex: Male

DRUGS (1)
  1. ENZALUTAMIDE [Suspect]
     Active Substance: ENZALUTAMIDE
     Indication: Prostate cancer
     Route: 048
     Dates: start: 20231218

REACTIONS (2)
  - Dyspnoea [Not Recovered/Not Resolved]
  - Loss of consciousness [Unknown]

NARRATIVE: CASE EVENT DATE: 20250801
